FAERS Safety Report 4660937-5 (Version None)
Quarter: 2005Q2

REPORT INFORMATION
  Report Type: 
  Country: None (occurrence: None)
  Receive Date: 20050511
  Receipt Date: 20050503
  Transmission Date: 20051028
  Serious: Yes (Hospitalization)
  Sender: FDA-Public Use
  Company Number: 05P-163-0299425-00

PATIENT
  Age: 61 Year
  Sex: Male
  Weight: 121 kg

DRUGS (4)
  1. HUMIRA [Suspect]
     Indication: POLYARTHRITIS
     Dosage: 40 MG, 1 IN 1 WK, SUBCUTANEOUS
     Dates: start: 20040101, end: 20050404
  2. SULTOPRIDE [Concomitant]
  3. FLECKNIDE [Concomitant]
  4. HYDROCHLOROTHIAZIDE [Concomitant]

REACTIONS (1)
  - INTERVERTEBRAL DISC PROTRUSION [None]
